FAERS Safety Report 11023496 (Version 3)
Quarter: 2015Q2

REPORT INFORMATION
  Report Type: Spontaneous
  Country: US (occurrence: US)
  Receive Date: 20150413
  Receipt Date: 20150619
  Transmission Date: 20150821
  Serious: Yes (Hospitalization)
  Sender: FDA-Public Use
  Company Number: US-PFIZER INC-2015122019

PATIENT
  Age: 66 Year
  Sex: Female
  Weight: 70.75 kg

DRUGS (3)
  1. GABAPENTIN. [Suspect]
     Active Substance: GABAPENTIN
     Indication: POST PROCEDURAL COMPLICATION
     Dosage: 300 MG, 3X/DAY
     Dates: start: 20140501
  2. GABAPENTIN. [Suspect]
     Active Substance: GABAPENTIN
     Indication: LIMB DISCOMFORT
     Dosage: 300 MG, 2X/DAY
  3. GABAPENTIN. [Suspect]
     Active Substance: GABAPENTIN
     Indication: NEUROPATHY PERIPHERAL

REACTIONS (6)
  - Skin discolouration [Unknown]
  - Gait disturbance [Unknown]
  - Drug ineffective [Recovered/Resolved]
  - Activities of daily living impaired [Unknown]
  - Pain [Unknown]
  - Neuropathy peripheral [Unknown]

NARRATIVE: CASE EVENT DATE: 20140501
